FAERS Safety Report 21594221 (Version 1)
Quarter: 2022Q4

REPORT INFORMATION
  Report Type: Spontaneous
  Country: US (occurrence: US)
  Receive Date: 20221115
  Receipt Date: 20221115
  Transmission Date: 20230113
  Serious: No
  Sender: FDA-Public Use
  Company Number: US-Ipsen Biopharmaceuticals, Inc.-2022-30921

PATIENT
  Sex: Female

DRUGS (3)
  1. DYSPORT [Suspect]
     Active Substance: ABOBOTULINUMTOXINA
     Indication: Skin wrinkling
     Dosage: 100 IU (25IU GLABELLA; 75 IU FRONTALIS)
     Route: 065
     Dates: start: 20220407, end: 20220407
  2. DYSPORT [Suspect]
     Active Substance: ABOBOTULINUMTOXINA
     Indication: Skin wrinkling
  3. DYSPORT [Suspect]
     Active Substance: ABOBOTULINUMTOXINA
     Indication: Off label use

REACTIONS (5)
  - Visual impairment [Unknown]
  - Tension headache [Unknown]
  - Headache [Unknown]
  - Alopecia [Unknown]
  - Off label use [Unknown]

NARRATIVE: CASE EVENT DATE: 20220101
